FAERS Safety Report 16020900 (Version 3)
Quarter: 2019Q3

REPORT INFORMATION
  Report Type: Spontaneous
  Country: US (occurrence: US)
  Receive Date: 20190301
  Receipt Date: 20190710
  Transmission Date: 20191004
  Serious: No
  Sender: FDA-Public Use
  Company Number: US-PFIZER INC-2017304457

PATIENT
  Age: 45 Year
  Sex: Female
  Weight: 147 kg

DRUGS (15)
  1. XANAX [Concomitant]
     Active Substance: ALPRAZOLAM
     Indication: ANXIETY
     Dosage: 0.5 MG, AS NEEDED
     Dates: start: 2010, end: 201808
  2. HYDROCODONE [Concomitant]
     Active Substance: HYDROCODONE
     Dosage: UNK
     Dates: start: 2017
  3. GENOTROPIN [Suspect]
     Active Substance: SOMATROPIN
     Indication: HYPOTHALAMO-PITUITARY DISORDER
     Dosage: UNK
  4. LAMICTAL [Concomitant]
     Active Substance: LAMOTRIGINE
     Indication: DEPRESSION
     Dosage: 150 MG, 1X/DAY
     Dates: start: 2010, end: 201805
  5. EFFEXOR XR [Concomitant]
     Active Substance: VENLAFAXINE HYDROCHLORIDE
     Dosage: UNK
     Dates: start: 201805
  6. HYDROCODONE [Concomitant]
     Active Substance: HYDROCODONE
     Indication: ARTHRITIS
     Dosage: 5/325MG AS NEEDED
     Dates: start: 2016
  7. GENOTROPIN [Suspect]
     Active Substance: SOMATROPIN
     Dosage: 0.8 MG, 1X/DAY
     Route: 058
     Dates: start: 201710
  8. NATURE-THROID [Concomitant]
     Active Substance: THYROID, PORCINE
     Dosage: 195 MG, 1X/DAY
     Dates: start: 2015
  9. NATURE-THROID [Concomitant]
     Active Substance: THYROID, PORCINE
     Indication: AUTOIMMUNE THYROIDITIS
     Dosage: UNK
     Dates: start: 2011
  10. GENOTROPIN [Suspect]
     Active Substance: SOMATROPIN
     Dosage: 1 MG, DAILY
  11. GENOTROPIN [Suspect]
     Active Substance: SOMATROPIN
     Dosage: UNK, 1X/DAY (.08 1X DAY)
     Dates: start: 2017, end: 201811
  12. NATURE-THROID [Concomitant]
     Active Substance: THYROID, PORCINE
     Dosage: 48.75 MG, 1X/DAY
     Dates: start: 2015
  13. GENOTROPIN [Suspect]
     Active Substance: SOMATROPIN
     Indication: GROWTH HORMONE DEFICIENCY
     Dosage: 0.8 MG, 1X/DAY
     Dates: start: 20170622
  14. EFFEXOR XR [Concomitant]
     Active Substance: VENLAFAXINE HYDROCHLORIDE
     Indication: AFFECTIVE DISORDER
     Dosage: 75 MG, 1X/DAY
     Dates: start: 201704
  15. ESTRADIOL. [Concomitant]
     Active Substance: ESTRADIOL
     Indication: HORMONE REPLACEMENT THERAPY
     Dosage: 0.0375 MG, ONCE A WEEK
     Dates: start: 2014, end: 201904

REACTIONS (23)
  - Product dose omission [Unknown]
  - Myalgia [Unknown]
  - Contusion [Not Recovered/Not Resolved]
  - Dizziness [Unknown]
  - Blood thyroid stimulating hormone decreased [Unknown]
  - Fatigue [Unknown]
  - Red blood cell sedimentation rate increased [Unknown]
  - Swelling [Unknown]
  - Breast tenderness [Not Recovered/Not Resolved]
  - Insomnia [Not Recovered/Not Resolved]
  - Device issue [Unknown]
  - C-reactive protein increased [Unknown]
  - Depression [Unknown]
  - Temperature intolerance [Not Recovered/Not Resolved]
  - Abdominal pain [Unknown]
  - Polyuria [Unknown]
  - Insulin-like growth factor decreased [Not Recovered/Not Resolved]
  - Dry skin [Not Recovered/Not Resolved]
  - Asthenia [Unknown]
  - Diarrhoea [Unknown]
  - Intentional product use issue [Unknown]
  - Weight increased [Not Recovered/Not Resolved]
  - Nausea [Unknown]

NARRATIVE: CASE EVENT DATE: 2017
